FAERS Safety Report 4412824-5 (Version None)
Quarter: 2004Q3

REPORT INFORMATION
  Report Type: 
  Country: None (occurrence: None)
  Receive Date: 20040730
  Receipt Date: 20040730
  Transmission Date: 20050211
  Serious: Yes (Life-Threatening, Hospitalization)
  Sender: FDA-Public Use
  Company Number: None

PATIENT
  Sex: Male
  Weight: 81.8 kg

DRUGS (2)
  1. METOLAZONE [Suspect]
     Indication: OEDEMA PERIPHERAL
     Dosage: 5 MG QD ORAL
     Route: 048
     Dates: start: 20040709, end: 20040727
  2. FUROSEMIDE [Suspect]
     Indication: OEDEMA PERIPHERAL
     Dosage: 80 MG QD ORAL
     Route: 048
     Dates: start: 20040218, end: 20040727

REACTIONS (7)
  - CONDITION AGGRAVATED [None]
  - DEHYDRATION [None]
  - DIZZINESS [None]
  - HYPOKALAEMIA [None]
  - HYPONATRAEMIA [None]
  - METABOLIC ACIDOSIS [None]
  - OEDEMA [None]
